FAERS Safety Report 20383128 (Version 2)
Quarter: 2022Q1

REPORT INFORMATION
  Report Type: Spontaneous
  Country: PY (occurrence: PY)
  Receive Date: 20220127
  Receipt Date: 20220211
  Transmission Date: 20220423
  Serious: Yes (Death, Hospitalization, Other)
  Sender: FDA-Public Use
  Company Number: PY-NOVARTISPH-NVSC2022PY017033

PATIENT
  Age: 85 Year
  Sex: Female
  Weight: 50 kg

DRUGS (2)
  1. GLIVEC [Suspect]
     Active Substance: IMATINIB MESYLATE
     Indication: Chronic myeloid leukaemia
     Dosage: 400 MG, QD
     Route: 065
     Dates: start: 20190404
  2. GLIVEC [Suspect]
     Active Substance: IMATINIB MESYLATE
     Dosage: 400 MG (4 OF 100 MG)
     Route: 065

REACTIONS (13)
  - Haemothorax [Fatal]
  - Acute respiratory failure [Fatal]
  - Colon neoplasm [Unknown]
  - Haemoglobin decreased [Unknown]
  - Fall [Unknown]
  - Rib fracture [Unknown]
  - Haematocrit decreased [Unknown]
  - White blood cell count increased [Unknown]
  - Blood urea increased [Unknown]
  - Prothrombin time abnormal [Unknown]
  - International normalised ratio increased [Unknown]
  - Blood fibrinogen increased [Unknown]
  - Blood creatinine increased [Unknown]

NARRATIVE: CASE EVENT DATE: 20220120
